FAERS Safety Report 4859663-9 (Version None)
Quarter: 2005Q4

REPORT INFORMATION
  Report Type: 
  Country: None (occurrence: None)
  Receive Date: 20051219
  Receipt Date: 20040130
  Transmission Date: 20060501
  Serious: Yes (Hospitalization, Other)
  Sender: FDA-Public Use
  Company Number: JP-AVENTIS-200410220JP

PATIENT
  Age: 59 Year
  Sex: Male
  Weight: 57.7 kg

DRUGS (7)
  1. KETEK [Suspect]
     Indication: BRONCHITIS
     Route: 048
     Dates: start: 20040122, end: 20040126
  2. VOLTAREN [Concomitant]
     Route: 048
     Dates: start: 20040122, end: 20040126
  3. MEDICON [Concomitant]
     Route: 048
     Dates: start: 20040122, end: 20040126
  4. DASEN [Concomitant]
     Route: 048
     Dates: start: 20040122, end: 20040126
  5. ULCERLMIN [Concomitant]
     Route: 048
     Dates: start: 20030109
  6. CONIEL [Concomitant]
     Route: 048
     Dates: start: 20030423
  7. ALMARL [Concomitant]
     Route: 048
     Dates: start: 20030423

REACTIONS (6)
  - BLOOD AMYLASE INCREASED [None]
  - DRUG ERUPTION [None]
  - HEPATITIS [None]
  - HYPERGLYCAEMIA [None]
  - LIVER DISORDER [None]
  - RASH PRURITIC [None]
